FAERS Safety Report 7994561-3 (Version None)
Quarter: 2011Q4

REPORT INFORMATION
  Report Type: 
  Country: None (occurrence: None)
  Receive Date: 20111220
  Receipt Date: 20111219
  Transmission Date: 20120403
  Serious: Yes (Life-Threatening)
  Sender: FDA-Public Use
  Company Number: JP-PFIZER INC-2011260229

PATIENT
  Sex: Female

DRUGS (1)
  1. ZOLOFT [Suspect]
     Dosage: UNK
     Route: 048

REACTIONS (2)
  - ACTIVATION SYNDROME [None]
  - SUICIDE ATTEMPT [None]
